FAERS Safety Report 13261639 (Version 1)
Quarter: 2017Q1

REPORT INFORMATION
  Report Type: Report from Study
  Country: BR (occurrence: BR)
  Receive Date: 20170222
  Receipt Date: 20170222
  Transmission Date: 20170428
  Serious: Yes (Hospitalization, Other)
  Sender: FDA-Public Use
  Company Number: PHHY2016BR028782

PATIENT
  Sex: Female
  Weight: 80 kg

DRUGS (3)
  1. EXJADE [Suspect]
     Active Substance: DEFERASIROX
     Indication: ANAEMIA
     Dosage: 500 MG, QD (EVERY DAY, AT 8:00 IN THE MORNING)
     Route: 048
  2. EXJADE [Suspect]
     Active Substance: DEFERASIROX
     Indication: MYELODYSPLASTIC SYNDROME
     Dosage: 10 MG/KG, QD (2 TABLETS OF 500 MG DAILY)(1000 MG)
     Route: 048
  3. COMPLEX B [Concomitant]
     Active Substance: CALCIUM PANTOTHENATE\CYANOCOBALAMIN\NIACINAMIDE\PYRIDOXINE HYDROCHLORIDE\RIBOFLAVIN\THIAMINE MONONITRATE
     Indication: PRODUCT USED FOR UNKNOWN INDICATION
     Dosage: UNK
     Route: 048

REACTIONS (16)
  - Wrong technique in product usage process [Unknown]
  - Asthenia [Unknown]
  - Discomfort [Unknown]
  - Dizziness [Unknown]
  - Memory impairment [Unknown]
  - Blood iron increased [Unknown]
  - Anaemia [Unknown]
  - Abasia [Unknown]
  - Weight decreased [Unknown]
  - Pallor [Unknown]
  - Haemoglobin decreased [Unknown]
  - Malaise [Unknown]
  - Weight increased [Unknown]
  - Apathy [Unknown]
  - Visual impairment [Unknown]
  - Fatigue [Unknown]
